FAERS Safety Report 5281701-2 (Version None)
Quarter: 2007Q1

REPORT INFORMATION
  Report Type: 
  Country: None (occurrence: None)
  Receive Date: 20070330
  Receipt Date: 20070323
  Transmission Date: 20070707
  Serious: Yes (Life-Threatening)
  Sender: FDA-Public Use
  Company Number: ES-AVENTIS-200711514EU

PATIENT
  Age: 57 Year
  Sex: Female
  Weight: 58 kg

DRUGS (2)
  1. SEGURIL                            /00032601/ [Suspect]
     Route: 042
     Dates: start: 20061124, end: 20061127
  2. POTASSIUM CANRENOATE [Suspect]
     Route: 042
     Dates: start: 20061120, end: 20061127

REACTIONS (2)
  - ASCITES [None]
  - RENAL IMPAIRMENT [None]
